FAERS Safety Report 23683004 (Version 1)
Quarter: 2024Q1

REPORT INFORMATION
  Report Type: Spontaneous
  Country: US (occurrence: US)
  Receive Date: 20240328
  Receipt Date: 20240328
  Transmission Date: 20240410
  Serious: No
  Sender: FDA-Public Use
  Company Number: US-AMGEN-USASP2024059499

PATIENT
  Age: 72 Year
  Sex: Male

DRUGS (6)
  1. BEVACIZUMAB [Suspect]
     Active Substance: BEVACIZUMAB
     Indication: Macular oedema
     Dosage: UNK
  2. PREDNISONE [Concomitant]
     Active Substance: PREDNISONE
     Indication: Cytomegalovirus infection
     Route: 065
  3. PREDNISONE [Concomitant]
     Active Substance: PREDNISONE
     Indication: Epstein-Barr virus infection
  4. TACROLIMUS [Concomitant]
     Active Substance: TACROLIMUS
     Indication: Cytomegalovirus infection
  5. TACROLIMUS [Concomitant]
     Active Substance: TACROLIMUS
     Indication: Epstein-Barr virus infection
  6. MARIBAVIR [Concomitant]
     Active Substance: MARIBAVIR
     Indication: Cytomegalovirus chorioretinitis

REACTIONS (1)
  - Off label use [Unknown]
